FAERS Safety Report 7933434-9 (Version None)
Quarter: 2011Q4

REPORT INFORMATION
  Report Type: 
  Country: None (occurrence: None)
  Receive Date: 20111122
  Receipt Date: 20111115
  Transmission Date: 20120403
  Serious: Yes (Hospitalization, Other)
  Sender: FDA-Public Use
  Company Number: CA-PFIZER INC-2011281919

PATIENT
  Age: 25 Year
  Sex: Female

DRUGS (14)
  1. ZYPREXA [Suspect]
     Dosage: 30 MG, 1X/DAY
  2. ZYPREXA [Suspect]
     Dosage: 20 MG, 1X/DAY
  3. RISPERDAL [Concomitant]
     Dosage: UNK
  4. PROZAC [Concomitant]
     Dosage: UNK
  5. ZIPRASIDONE HCL [Suspect]
     Dosage: UNK
  6. WELLBUTRIN [Concomitant]
     Dosage: UNK
  7. IMOVANE [Concomitant]
     Dosage: UNK
  8. ZYPREXA [Suspect]
     Indication: SCHIZOPHRENIA
     Dosage: 40 MG, 1X/DAY
     Dates: start: 20030722
  9. METHOTRIMEPRAZINE [Concomitant]
     Dosage: UNK
  10. PERINDOPRIL [Concomitant]
     Dosage: UNK
  11. ABILIFY [Concomitant]
     Dosage: UNK
  12. DIVALPROEX SODIUM [Concomitant]
     Dosage: UNK
  13. ZYPREXA [Suspect]
     Dosage: 50 MG, 1X/DAY
  14. SEROQUEL [Concomitant]
     Dosage: UNK

REACTIONS (11)
  - DIABETIC KETOACIDOSIS [None]
  - TYPE 1 DIABETES MELLITUS [None]
  - ALANINE AMINOTRANSFERASE INCREASED [None]
  - HEPATIC STEATOSIS [None]
  - HEPATOMEGALY [None]
  - ELECTROCARDIOGRAM QT PROLONGED [None]
  - ASPARTATE AMINOTRANSFERASE INCREASED [None]
  - HAEMORRHAGIC OVARIAN CYST [None]
  - MEAN CELL HAEMOGLOBIN INCREASED [None]
  - STREPTOCOCCAL URINARY TRACT INFECTION [None]
  - WEIGHT INCREASED [None]
